FAERS Safety Report 6231876-3 (Version None)
Quarter: 2009Q2

REPORT INFORMATION
  Report Type: 
  Country: None (occurrence: None)
  Receive Date: 20090612
  Receipt Date: 20090612
  Transmission Date: 20091009
  Serious: Yes (Other)
  Sender: FDA-Public Use
  Company Number: None

PATIENT
  Age: 32 Year
  Sex: Male
  Weight: 70.3075 kg

DRUGS (4)
  1. DAPTOMYCIN 500 MG VIAL CUBIST [Suspect]
     Indication: BACTERAEMIA
     Dosage: DAPTOMYCIN 470MG 24 HR IV
     Route: 042
     Dates: start: 20090512, end: 20090604
  2. DAPTOMYCIN 500 MG VIAL CUBIST [Suspect]
     Indication: ENTEROCOCCAL INFECTION
     Dosage: DAPTOMYCIN 470MG 24 HR IV
     Route: 042
     Dates: start: 20090512, end: 20090604
  3. DAPTOMYCIN 500 MG VIAL CUBIST [Suspect]
     Indication: PATHOGEN RESISTANCE
     Dosage: DAPTOMYCIN 470MG 24 HR IV
     Route: 042
     Dates: start: 20090512, end: 20090604
  4. DAPTOMYCIN 500 MG VIAL CUBIST [Suspect]

REACTIONS (1)
  - WHITE BLOOD CELL COUNT DECREASED [None]
